FAERS Safety Report 15533805 (Version 2)
Quarter: 2018Q4

REPORT INFORMATION
  Report Type: Spontaneous
  Country: BR (occurrence: BR)
  Receive Date: 20181019
  Receipt Date: 20181024
  Transmission Date: 20190205
  Serious: Yes (Other)
  Sender: FDA-Public Use
  Company Number: BR-GILEAD-2018-0367501

PATIENT
  Age: 72 Year
  Sex: Female
  Weight: 78 kg

DRUGS (12)
  1. DAKLINZA [Interacting]
     Active Substance: DACLATASVIR
     Indication: CHRONIC HEPATITIS C
     Dosage: 60 MG, QD
     Route: 065
     Dates: start: 20170205, end: 20170427
  2. OMEPRAZOLE. [Concomitant]
     Active Substance: OMEPRAZOLE
  3. ENALAPRIL [Concomitant]
     Active Substance: ENALAPRIL
  4. METFORMIN [Interacting]
     Active Substance: METFORMIN HYDROCHLORIDE
     Indication: PRODUCT USED FOR UNKNOWN INDICATION
     Dosage: UNK
     Route: 065
     Dates: end: 20170307
  5. GLICLAZIDE [Concomitant]
     Active Substance: GLICLAZIDE
  6. RIBAVIRIN. [Interacting]
     Active Substance: RIBAVIRIN
     Indication: CHRONIC HEPATITIS C
     Dosage: 500 MG, TID, 1000MG QAM, 500MG QHS
     Route: 065
     Dates: start: 20170205, end: 20170213
  7. FUROSEMIDE. [Concomitant]
     Active Substance: FUROSEMIDE
  8. LACTULOSE. [Concomitant]
     Active Substance: LACTULOSE
  9. AMLODIPINE [Interacting]
     Active Substance: AMLODIPINE BESYLATE
     Indication: PRODUCT USED FOR UNKNOWN INDICATION
     Dosage: UNK
     Route: 065
     Dates: end: 20170307
  10. SPIRONOLACTONE. [Concomitant]
     Active Substance: SPIRONOLACTONE
  11. SOVALDI [Suspect]
     Active Substance: SOFOSBUVIR
     Indication: CHRONIC HEPATITIS C
     Dosage: 400 MG, QD
     Route: 065
     Dates: start: 20170205, end: 20170427
  12. RIBAVIRIN. [Interacting]
     Active Substance: RIBAVIRIN
     Dosage: 500 MG, QD
     Route: 065
     Dates: start: 20170214, end: 20170427

REACTIONS (21)
  - Polyuria [Recovered/Resolved]
  - Fatigue [Unknown]
  - Polydipsia [Recovered/Resolved]
  - Paraesthesia [Unknown]
  - Loss of personal independence in daily activities [Unknown]
  - Hypotension [Unknown]
  - Frequent bowel movements [Unknown]
  - Weight decreased [Recovered/Resolved]
  - Abdominal pain upper [Recovering/Resolving]
  - Drug interaction [Recovered/Resolved]
  - Jaundice [Unknown]
  - Dizziness [Unknown]
  - Abnormal faeces [Unknown]
  - Haemoglobin decreased [Recovered/Resolved]
  - Hyperphagia [Recovered/Resolved]
  - Diarrhoea [Recovering/Resolving]
  - Abdominal pain [Recovering/Resolving]
  - Tremor [Unknown]
  - Paraesthesia [Unknown]
  - Pain in extremity [Unknown]
  - Muscle spasms [Unknown]

NARRATIVE: CASE EVENT DATE: 2017
